FAERS Safety Report 8456114-2 (Version None)
Quarter: 2012Q2

REPORT INFORMATION
  Report Type: 
  Country: None (occurrence: None)
  Receive Date: 20120323
  Receipt Date: 20110824
  Transmission Date: 20120825
  Serious: Yes (Hospitalization)
  Sender: FDA-Public Use
  Company Number: 163-21880-11082976

PATIENT
  Age: 63 Year
  Sex: Male

DRUGS (2)
  1. REVLIMID [Suspect]
     Indication: MULTIPLE MYELOMA
     Dosage: 10 MG, DAILY FOR 3 WEEKS, PO ; 10 MG, DAILY FOR 3 WKS, PO
     Route: 048
     Dates: start: 20090109, end: 20100107
  2. REVLIMID [Suspect]
     Indication: MULTIPLE MYELOMA
     Dosage: 10 MG, DAILY FOR 3 WEEKS, PO ; 10 MG, DAILY FOR 3 WKS, PO
     Route: 048
     Dates: start: 20100503, end: 20110101

REACTIONS (1)
  - PNEUMONIA [None]
